FAERS Safety Report 24842566 (Version 1)
Quarter: 2025Q1

REPORT INFORMATION
  Report Type: Spontaneous
  Country: CN (occurrence: CN)
  Receive Date: 20250115
  Receipt Date: 20250115
  Transmission Date: 20250408
  Serious: Yes (Other)
  Sender: BEIGENE
  Company Number: CN-BEIGENE-BGN-2025-000586

PATIENT

DRUGS (6)
  1. TISLELIZUMAB [Suspect]
     Active Substance: TISLELIZUMAB
     Indication: Malignant mediastinal neoplasm
     Route: 041
     Dates: start: 20241206
  2. CISPLATIN [Suspect]
     Active Substance: CISPLATIN
     Indication: Malignant mediastinal neoplasm
     Route: 041
     Dates: start: 20241207
  3. GEMCITABINE HYDROCHLORIDE [Suspect]
     Active Substance: GEMCITABINE HYDROCHLORIDE
     Indication: Malignant mediastinal neoplasm
     Route: 041
     Dates: start: 20241207
  4. DEXAMETHASONE SODIUM PHOSPHATE [Concomitant]
     Active Substance: DEXAMETHASONE SODIUM PHOSPHATE
     Indication: Prophylaxis
     Dosage: 10 MILLIGRAM, QD
     Route: 041
     Dates: start: 20241207, end: 20241207
  5. JI OU TING [Concomitant]
     Indication: Prophylaxis
     Dosage: 0.25 MILLIGRAM, QD
     Route: 041
     Dates: start: 20241207, end: 20241207
  6. HERBALS [Concomitant]
     Active Substance: HERBALS
     Indication: Adjuvant therapy
     Dosage: 20 MILLILITER, QD
     Route: 041
     Dates: start: 20241206, end: 20241212

REACTIONS (1)
  - Myelosuppression [Unknown]

NARRATIVE: CASE EVENT DATE: 20241210
